FAERS Safety Report 9684690 (Version 1)
Quarter: 2013Q4

REPORT INFORMATION
  Report Type: Spontaneous
  Country: GB (occurrence: GB)
  Receive Date: 20131112
  Receipt Date: 20131112
  Transmission Date: 20140711
  Serious: Yes (Other)
  Sender: FDA-Public Use
  Company Number: GB-009507513-1311GBR002550

PATIENT
  Age: 40 Year
  Sex: Female
  Weight: 95.7 kg

DRUGS (2)
  1. MIRTAZAPINE [Suspect]
     Indication: DEPRESSION
     Dosage: 15 MG, UNK
     Route: 048
  2. VENLAFAXINE HYDROCHLORIDE [Concomitant]

REACTIONS (1)
  - Aggression [Recovering/Resolving]
